FAERS Safety Report 6956123-6 (Version None)
Quarter: 2010Q3

REPORT INFORMATION
  Report Type: 
  Country: None (occurrence: None)
  Receive Date: 20100830
  Receipt Date: 20090824
  Transmission Date: 20110219
  Serious: No
  Sender: FDA-Public Use
  Company Number: US-BAUSCH-2009BL004303

PATIENT
  Age: 45 Year
  Sex: Male

DRUGS (8)
  1. CROMOLYN SODIUM [Suspect]
     Indication: HYPERSENSITIVITY
     Route: 045
     Dates: start: 20090601
  2. MORPHINE [Concomitant]
  3. OXYCODONE [Concomitant]
  4. INSULIN [Concomitant]
  5. ASCORBIC ACID [Concomitant]
  6. FISH OIL [Concomitant]
  7. VITAMIN B-12 [Concomitant]
  8. OXYGEN [Concomitant]

REACTIONS (1)
  - OROPHARYNGEAL PAIN [None]
